FAERS Safety Report 9700563 (Version 1)
Quarter: 2013Q4

REPORT INFORMATION
  Report Type: Report from Study
  Country: BR (occurrence: BR)
  Receive Date: 20131121
  Receipt Date: 20131121
  Transmission Date: 20140711
  Serious: Yes (Other)
  Sender: FDA-Public Use
  Company Number: PHHY2013BR131673

PATIENT
  Sex: Female
  Weight: 56.57 kg

DRUGS (2)
  1. SANDOSTATIN LAR [Suspect]
     Indication: NEUROENDOCRINE TUMOUR
     Dosage: 01 AMPULE, EACH 28 DAYS
     Dates: start: 201005
  2. AFINITOR [Concomitant]
     Dosage: UNK UKN, UNK
     Dates: start: 201302

REACTIONS (2)
  - Neoplasm [Unknown]
  - Intestinal obstruction [Unknown]
